FAERS Safety Report 21115212 (Version 1)
Quarter: 2022Q3

REPORT INFORMATION
  Report Type: Spontaneous
  Country: CN (occurrence: CN)
  Receive Date: 20220721
  Receipt Date: 20220721
  Transmission Date: 20221027
  Serious: Yes (Other)
  Sender: FDA-Public Use
  Company Number: CN-SCALL-2022-CN-000213

PATIENT
  Age: 66 Year
  Sex: Male
  Weight: 65 kg

DRUGS (4)
  1. RABEPRAZOLE SODIUM [Suspect]
     Active Substance: RABEPRAZOLE SODIUM
     Indication: Dyspepsia
     Dosage: 1 DOSAGE FORMS,12 HR
     Route: 045
     Dates: start: 20200318, end: 20200402
  2. DIFLUCAN [Suspect]
     Active Substance: FLUCONAZOLE
     Dosage: 8 DOSAGE FORMS,1 D; 4 DOSAGE FORMS,1 D
     Route: 045
     Dates: start: 20200319, end: 20200330
  3. SODIUM CHLORIDE [Concomitant]
     Active Substance: SODIUM CHLORIDE
     Dosage: 20 ML,8 HR
     Dates: start: 20200320, end: 20200406
  4. PIPERACILLIN SODIUM\TAZOBACTAM SODIUM [Suspect]
     Active Substance: PIPERACILLIN SODIUM\TAZOBACTAM SODIUM
     Dosage: 4.5 GM,8 HR
     Route: 065
     Dates: start: 20200320, end: 20200406

REACTIONS (2)
  - Hepatic function abnormal [Recovering/Resolving]
  - Incorrect route of product administration [Recovering/Resolving]

NARRATIVE: CASE EVENT DATE: 20200318
